FAERS Safety Report 5983744-X (Version None)
Quarter: 2008Q4

REPORT INFORMATION
  Report Type: 
  Country: None (occurrence: None)
  Receive Date: 20081208
  Receipt Date: 20081020
  Transmission Date: 20090506
  Serious: Yes (Other)
  Sender: FDA-Public Use
  Company Number: US-AMGEN-QUU314397

PATIENT
  Sex: Female

DRUGS (3)
  1. ENBREL [Suspect]
     Indication: PSORIASIS
     Route: 058
     Dates: start: 20031001
  2. ENBREL [Suspect]
     Indication: PSORIATIC ARTHROPATHY
  3. UNSPECIFIED MEDICATION [Concomitant]

REACTIONS (7)
  - ARTHRITIS INFECTIVE [None]
  - BLOOD GLUCOSE INCREASED [None]
  - GINGIVAL PAIN [None]
  - PSORIASIS [None]
  - PULMONARY EMBOLISM [None]
  - URINARY TRACT INFECTION [None]
  - WEIGHT INCREASED [None]
